FAERS Safety Report 5483085-3 (Version None)
Quarter: 2007Q4

REPORT INFORMATION
  Report Type: 
  Country: None (occurrence: None)
  Receive Date: 20071009
  Receipt Date: 20070924
  Transmission Date: 20080405
  Serious: Yes (Hospitalization, Other)
  Sender: FDA-Public Use
  Company Number: 238117K07USA

PATIENT
  Age: 25 Year
  Sex: Female

DRUGS (3)
  1. REBIF [Suspect]
     Indication: MULTIPLE SCLEROSIS
     Dosage: 22 MCG, 3 IN 1 WEEKS, SUBCUTANEOUS
     Route: 058
     Dates: start: 20070827
  2. WELLBUTRIN [Concomitant]
  3. VITAMIN D [Concomitant]

REACTIONS (2)
  - CONVULSION [None]
  - MUSCULOSKELETAL STIFFNESS [None]
